FAERS Safety Report 14258237 (Version 1)
Quarter: 2017Q4

REPORT INFORMATION
  Report Type: Spontaneous
  Country: FR (occurrence: FR)
  Receive Date: 20171207
  Receipt Date: 20171207
  Transmission Date: 20180321
  Serious: Yes (Death)
  Sender: FDA-Public Use
  Company Number: FR-009507513-1711FRA011680

PATIENT
  Age: 39 Year
  Sex: Male

DRUGS (6)
  1. MORPHINE [Suspect]
     Active Substance: MORPHINE
  2. VENLAFAXINE HYDROCHLORIDE. [Suspect]
     Active Substance: VENLAFAXINE HYDROCHLORIDE
  3. OLANZAPINE. [Suspect]
     Active Substance: OLANZAPINE
  4. MIRTAZAPINE. [Suspect]
     Active Substance: MIRTAZAPINE
  5. LORAZEPAM. [Suspect]
     Active Substance: LORAZEPAM
  6. LYRICA [Suspect]
     Active Substance: PREGABALIN

REACTIONS (1)
  - Overdose [Fatal]
